FAERS Safety Report 7910736-3 (Version None)
Quarter: 2011Q4

REPORT INFORMATION
  Report Type: 
  Country: None (occurrence: None)
  Receive Date: 20111112
  Receipt Date: 20111107
  Transmission Date: 20120403
  Serious: Yes (Life-Threatening, Hospitalization)
  Sender: FDA-Public Use
  Company Number: CA-ASTRAZENECA-2010SE00639

PATIENT
  Age: 69 Year
  Sex: Male

DRUGS (6)
  1. CRESTOR [Suspect]
     Route: 048
     Dates: start: 20090801
  2. CRESTOR [Suspect]
     Route: 048
     Dates: start: 20060101
  3. PERINDOPRIL ERBUMINE [Concomitant]
  4. EZETIMIBE [Concomitant]
  5. LIPITOR [Concomitant]
     Dates: start: 19990101
  6. LIPITOR [Concomitant]
     Dates: start: 20060101

REACTIONS (9)
  - HAEMOGLOBIN DECREASED [None]
  - BLOOD CHLORIDE DECREASED [None]
  - RHABDOMYOLYSIS [None]
  - SERUM FERRITIN INCREASED [None]
  - RENAL ATROPHY [None]
  - BLOOD CREATINE PHOSPHOKINASE INCREASED [None]
  - BLOOD CREATININE INCREASED [None]
  - ISCHAEMIC NEPHROPATHY [None]
  - RENAL FAILURE ACUTE [None]
